FAERS Safety Report 14282156 (Version 7)
Quarter: 2018Q1

REPORT INFORMATION
  Report Type: Report from Study
  Country: CA (occurrence: CA)
  Receive Date: 20171213
  Receipt Date: 20180309
  Transmission Date: 20180508
  Serious: Yes (Hospitalization)
  Sender: FDA-Public Use
  Company Number: CA-ROCHE-2034504

PATIENT
  Age: 46 Year
  Sex: Female
  Weight: 62.8 kg

DRUGS (2)
  1. ATEZOLIZUMAB. [Suspect]
     Active Substance: ATEZOLIZUMAB
     Indication: COLON CANCER METASTATIC
     Dosage: FIXED DOSE, AS PER PROTOCOL.
     Route: 042
     Dates: start: 20171128
  2. RO 6958688 (T-CELL BISPECIFIC MONOCLONAL ANTIBODY) [Suspect]
     Active Substance: INVESTIGATIONAL PRODUCT
     Indication: COLON CANCER METASTATIC
     Dosage: 40 MG INITIAL DOSE, ESCALATING WEEKLY, AS PER PROTOCOL. FOLLOWED BY 1200 MG, ONCE EVERY THREE WEEKS.
     Route: 042
     Dates: start: 20171128

REACTIONS (2)
  - Infusion related reaction [Recovered/Resolved]
  - Infusion related reaction [Recovered/Resolved]

NARRATIVE: CASE EVENT DATE: 20171128
